FAERS Safety Report 7878314-2 (Version None)
Quarter: 2011Q4

REPORT INFORMATION
  Report Type: 
  Country: None (occurrence: None)
  Receive Date: 20111101
  Receipt Date: 20111026
  Transmission Date: 20120403
  Serious: Yes (Other)
  Sender: FDA-Public Use
  Company Number: US-JNJFOC-20110506261

PATIENT
  Sex: Female
  Weight: 90.72 kg

DRUGS (9)
  1. CELEBREX [Concomitant]
     Indication: ARTHRITIS
     Route: 048
  2. METFORMIN HCL [Concomitant]
     Indication: DIABETES MELLITUS
     Route: 048
  3. MULTIVITAMINES [Concomitant]
     Indication: MEDICAL DIET
     Route: 048
  4. LEVAQUIN [Suspect]
     Indication: URINARY TRACT INFECTION
     Route: 048
     Dates: start: 20110501, end: 20110101
  5. DEXILANT [Concomitant]
     Indication: GASTRIC DISORDER
     Route: 048
  6. AVAPRO [Concomitant]
     Indication: BLOOD PRESSURE
     Route: 048
  7. LEVAQUIN [Suspect]
     Indication: INFECTION
     Route: 048
     Dates: start: 20110501, end: 20110101
  8. ZETIA [Concomitant]
     Indication: LIPIDS
     Route: 048
  9. SYNTHROID [Concomitant]
     Indication: THYROID HORMONE REPLACEMENT THERAPY
     Route: 048

REACTIONS (6)
  - NEUROPATHY PERIPHERAL [None]
  - GAIT DISTURBANCE [None]
  - ARTHRALGIA [None]
  - METATARSALGIA [None]
  - FATIGUE [None]
  - JOINT STIFFNESS [None]
